FAERS Safety Report 21387094 (Version 2)
Quarter: 2022Q4

REPORT INFORMATION
  Report Type: Spontaneous
  Country: GB (occurrence: ZA)
  Receive Date: 20220928
  Receipt Date: 20221007
  Transmission Date: 20230113
  Serious: Yes (Death)
  Sender: FDA-Public Use
  Company Number: GB-MYLANLABS-2022M1097445

PATIENT
  Age: 37 Year
  Sex: Male
  Weight: 99.1 kg

DRUGS (1)
  1. CLOZARIL [Suspect]
     Active Substance: CLOZAPINE
     Indication: Schizophrenia
     Dosage: 575 MILLIGRAM, HS (STOP DATE: -SEP-2022)
     Route: 048
     Dates: start: 20190916

REACTIONS (1)
  - Cerebrovascular accident [Fatal]
